FAERS Safety Report 21138540 (Version 2)
Quarter: 2022Q3

REPORT INFORMATION
  Report Type: Spontaneous
  Country: BR (occurrence: BR)
  Receive Date: 20220727
  Receipt Date: 20220804
  Transmission Date: 20221027
  Serious: No
  Sender: FDA-Public Use
  Company Number: BR-009507513-2207BRA007405

PATIENT
  Age: 77 Year
  Sex: Female

DRUGS (2)
  1. PEMBROLIZUMAB [Suspect]
     Active Substance: PEMBROLIZUMAB
     Dosage: UNK
  2. PEMETREXED [Suspect]
     Active Substance: PEMETREXED
     Dosage: UNK

REACTIONS (3)
  - Tachycardia [Unknown]
  - Abdominal pain upper [Unknown]
  - Panic disorder [Unknown]
